FAERS Safety Report 10290545 (Version 1)
Quarter: 2014Q3

REPORT INFORMATION
  Report Type: Report from Study
  Country: US (occurrence: US)
  Receive Date: 20140710
  Receipt Date: 20140710
  Transmission Date: 20150326
  Serious: Yes (Other)
  Sender: FDA-Public Use
  Company Number: US-SA-2014SA088720

PATIENT
  Sex: Female

DRUGS (2)
  1. LANTUS SOLOSTAR [Suspect]
     Active Substance: INSULIN GLARGINE
     Indication: DIABETES MELLITUS
     Route: 065
  2. SOLOSTAR [Concomitant]
     Active Substance: DEVICE
     Indication: DIABETES MELLITUS

REACTIONS (7)
  - Hypertension [Unknown]
  - Somnolence [Unknown]
  - Blood glucose increased [Unknown]
  - Myocardial infarction [Unknown]
  - Headache [Unknown]
  - Dizziness [Unknown]
  - Drug dose omission [Unknown]
